FAERS Safety Report 7486598-8 (Version None)
Quarter: 2011Q2

REPORT INFORMATION
  Report Type: 
  Country: None (occurrence: None)
  Receive Date: 20110517
  Receipt Date: 20100924
  Transmission Date: 20111010
  Serious: No
  Sender: FDA-Public Use
  Company Number: US-NOVEN-ALL1-2010-05062

PATIENT
  Sex: Female
  Weight: 67.12 kg

DRUGS (2)
  1. MAXZIDE [Concomitant]
     Dosage: UNK, UNKNOWN
     Route: 065
  2. DAYTRANA [Suspect]
     Dosage: 20 MG, 1X/DAY:QD
     Route: 062
     Dates: start: 20080101

REACTIONS (3)
  - OFF LABEL USE [None]
  - COGNITIVE DISORDER [None]
  - PRODUCT ADHESION ISSUE [None]
